FAERS Safety Report 20053273 (Version 1)
Quarter: 2021Q4

REPORT INFORMATION
  Report Type: Spontaneous
  Country: US (occurrence: US)
  Receive Date: 20211110
  Receipt Date: 20211110
  Transmission Date: 20220303
  Serious: No
  Sender: FDA-Public Use
  Company Number: US-PFIZER INC-2020382859

PATIENT
  Age: 87 Year
  Sex: Female
  Weight: 70 kg

DRUGS (2)
  1. LYRICA [Suspect]
     Active Substance: PREGABALIN
     Indication: Balance disorder
     Dosage: 100 MG, 2X/DAY
     Route: 048
     Dates: start: 2019
  2. LYRICA [Suspect]
     Active Substance: PREGABALIN
     Indication: Muscular weakness

REACTIONS (2)
  - Gait disturbance [Unknown]
  - Off label use [Unknown]

NARRATIVE: CASE EVENT DATE: 20190101
